FAERS Safety Report 4509328-8 (Version None)
Quarter: 2004Q4

REPORT INFORMATION
  Report Type: 
  Country: None (occurrence: None)
  Receive Date: 20041123
  Receipt Date: 20041118
  Transmission Date: 20050328
  Serious: Yes (Disabling)
  Sender: FDA-Public Use
  Company Number: US-MERCK-0411USA03194

PATIENT
  Age: 57 Year
  Sex: Female

DRUGS (3)
  1. VIOXX [Suspect]
     Indication: ARTHRITIS
     Route: 048
     Dates: start: 20040601, end: 20040701
  2. ZOCOR [Concomitant]
     Route: 048
  3. LEVOXYL [Concomitant]
     Route: 065

REACTIONS (3)
  - HYPERTENSION [None]
  - NAUSEA [None]
  - VERTIGO [None]
